FAERS Safety Report 7235286-1 (Version None)
Quarter: 2011Q1

REPORT INFORMATION
  Report Type: 
  Country: None (occurrence: None)
  Receive Date: 20110120
  Receipt Date: 20110118
  Transmission Date: 20110831
  Serious: Yes (Death, Hospitalization)
  Sender: FDA-Public Use
  Company Number: FR-SANOFI-AVENTIS-2011SA003153

PATIENT
  Age: 79 Year
  Sex: Female

DRUGS (15)
  1. DURAGESIC-100 [Suspect]
     Indication: PAIN
     Dosage: DOSE:1 UNIT(S)
     Route: 062
     Dates: start: 20100701
  2. MODOPAR [Suspect]
     Indication: PARKINSON'S DISEASE
     Route: 048
     Dates: start: 20100716, end: 20100828
  3. EXELON [Concomitant]
     Indication: DEMENTIA
     Route: 062
  4. ESOMEPRAZOLE [Concomitant]
     Route: 048
  5. CORDARONE [Concomitant]
     Route: 048
  6. LASIX [Suspect]
     Route: 048
  7. PLAVIX [Concomitant]
     Indication: THROMBOSIS PROPHYLAXIS
     Route: 048
  8. SOLUPRED [Suspect]
     Route: 048
     Dates: start: 20100701
  9. ROSUVASTATIN CALCIUM [Concomitant]
     Route: 048
  10. LEVOTHYROX [Concomitant]
     Indication: THYROID DISORDER
     Route: 048
  11. ACTISKENAN [Suspect]
     Indication: PAIN
     Route: 048
     Dates: start: 20100701
  12. CARDENSIEL [Concomitant]
     Route: 048
  13. KEPPRA [Concomitant]
     Indication: EPILEPSY
     Route: 048
     Dates: start: 20100401
  14. KARDEGIC [Concomitant]
     Indication: THROMBOSIS PROPHYLAXIS
     Route: 048
  15. PERINDOPRIL [Concomitant]
     Route: 048

REACTIONS (6)
  - SHOCK [None]
  - DIARRHOEA [None]
  - GASTROINTESTINAL HAEMORRHAGE [None]
  - VOMITING [None]
  - PROTHROMBIN TIME ABNORMAL [None]
  - ANAEMIA [None]
